FAERS Safety Report 6418594-3 (Version None)
Quarter: 2009Q4

REPORT INFORMATION
  Report Type: 
  Country: None (occurrence: None)
  Receive Date: 20091028
  Receipt Date: 20091020
  Transmission Date: 20100525
  Serious: Yes (Hospitalization)
  Sender: FDA-Public Use
  Company Number: PHHO2009JP10046

PATIENT
  Sex: Female
  Weight: 58 kg

DRUGS (5)
  1. BLINDED FTY 720 FTY+CAP+MSC [Suspect]
     Dosage: CODE NOT BROKEN
     Route: 048
     Dates: start: 20081008, end: 20090331
  2. BLINDED NO TREATMENT RECEIVED NOMED [Suspect]
     Dosage: CODE NOT BROKEN
     Route: 048
     Dates: start: 20081008, end: 20090331
  3. BLINDED FTY 720 FTY+CAP+MSC [Suspect]
     Dosage: UNK
     Route: 048
     Dates: start: 20090401, end: 20090811
  4. BLINDED NO TREATMENT RECEIVED NOMED [Suspect]
     Dosage: UNK
     Route: 048
     Dates: start: 20090401, end: 20090811
  5. TEGRETOL [Suspect]
     Dosage: 200 MG, QD
     Dates: start: 20090701, end: 20090714

REACTIONS (22)
  - ANTIBODY TEST POSITIVE [None]
  - CENTRAL NERVOUS SYSTEM LESION [None]
  - DIZZINESS [None]
  - DRUG INEFFECTIVE [None]
  - DYSARTHRIA [None]
  - EYE PAIN [None]
  - HAEMORRHAGE SUBCUTANEOUS [None]
  - HICCUPS [None]
  - HYPOAESTHESIA [None]
  - LHERMITTE'S SIGN [None]
  - MALAISE [None]
  - MULTIPLE SCLEROSIS [None]
  - MULTIPLE SCLEROSIS RELAPSE [None]
  - MUSCULAR WEAKNESS [None]
  - NAUSEA [None]
  - NERVOUS SYSTEM DISORDER [None]
  - OPTIC NEURITIS [None]
  - PYREXIA [None]
  - SENSATION OF HEAVINESS [None]
  - VISION BLURRED [None]
  - VISUAL FIELD DEFECT [None]
  - VOMITING [None]
